FAERS Safety Report 7511711-3 (Version None)
Quarter: 2011Q2

REPORT INFORMATION
  Report Type: 
  Country: None (occurrence: None)
  Receive Date: 20110531
  Receipt Date: 20110523
  Transmission Date: 20111010
  Serious: Yes (Other)
  Sender: FDA-Public Use
  Company Number: FR-JNJFOC-20110310984

PATIENT
  Age: 51 Year
  Sex: Male

DRUGS (11)
  1. CISPLATIN [Suspect]
     Indication: BONE SARCOMA
     Route: 065
  2. CISPLATIN [Suspect]
     Route: 065
  3. DOXORUBICIN HYDROCHLORIDE [Suspect]
     Route: 042
  4. CISPLATIN [Suspect]
     Route: 065
  5. CISPLATIN [Suspect]
     Route: 065
  6. DOXORUBICIN HYDROCHLORIDE [Suspect]
     Route: 042
  7. DOXORUBICIN HYDROCHLORIDE [Suspect]
     Route: 042
  8. DOXORUBICIN HYDROCHLORIDE [Suspect]
     Indication: BONE SARCOMA
     Route: 042
  9. CISPLATIN [Suspect]
     Route: 065
  10. DOXORUBICIN HYDROCHLORIDE [Suspect]
     Route: 042
  11. CISPLATIN [Suspect]
     Route: 065

REACTIONS (5)
  - GASTROINTESTINAL TOXICITY [None]
  - POLYNEUROPATHY [None]
  - MUCOSAL INFLAMMATION [None]
  - ANAEMIA [None]
  - OFF LABEL USE [None]
